FAERS Safety Report 7267089-6 (Version None)
Quarter: 2011Q1

REPORT INFORMATION
  Report Type: 
  Country: None (occurrence: None)
  Receive Date: 20110119
  Receipt Date: 20110110
  Transmission Date: 20110831
  Serious: Yes (Hospitalization, Other)
  Sender: FDA-Public Use
  Company Number: 2010SP063531

PATIENT
  Age: 26 Year
  Sex: Female

DRUGS (1)
  1. IMPLANON [Suspect]
     Dosage: 1 DF
     Dates: end: 20101209

REACTIONS (11)
  - DISTURBANCE IN ATTENTION [None]
  - COUGH [None]
  - BLOOD PRESSURE DECREASED [None]
  - HEART RATE DECREASED [None]
  - ADNEXA UTERI PAIN [None]
  - AMNESIA [None]
  - MYALGIA [None]
  - VAGINAL HAEMORRHAGE [None]
  - VISUAL IMPAIRMENT [None]
  - TRANSIENT ISCHAEMIC ATTACK [None]
  - BLOOD PRESSURE INCREASED [None]
